FAERS Safety Report 9155129 (Version 8)
Quarter: 2013Q4

REPORT INFORMATION
  Report Type: Spontaneous
  Country: US (occurrence: US)
  Receive Date: 20130311
  Receipt Date: 20131209
  Transmission Date: 20140711
  Serious: Yes (Hospitalization, Disabling, Other)
  Sender: FDA-Public Use
  Company Number: US-JNJFOC-20130215810

PATIENT
  Age: 22 Year
  Sex: Female
  Weight: 61.24 kg

DRUGS (5)
  1. RISPERDAL [Suspect]
     Indication: DEPRESSION
     Route: 048
     Dates: start: 201204, end: 201301
  2. RISPERDAL [Suspect]
     Indication: SCHIZOPHRENIA
     Route: 048
     Dates: start: 201204, end: 201301
  3. MIRTAZAPINE [Suspect]
     Indication: PRODUCT USED FOR UNKNOWN INDICATION
  4. MIRTAZAPINE [Suspect]
     Indication: PRODUCT USED FOR UNKNOWN INDICATION
     Dosage: AT BED TIME
  5. ABILIFY [Suspect]
     Indication: SCHIZOPHRENIA
     Route: 048
     Dates: start: 201204

REACTIONS (7)
  - Intracranial pressure increased [Unknown]
  - Dizziness [Unknown]
  - Breast enlargement [Not Recovered/Not Resolved]
  - Weight increased [Recovered/Resolved]
  - Injury [Unknown]
  - Papilloedema [Unknown]
  - Blindness [Not Recovered/Not Resolved]
